FAERS Safety Report 14245630 (Version 2)
Quarter: 2017Q4

REPORT INFORMATION
  Report Type: Spontaneous
  Country: US (occurrence: US)
  Receive Date: 20171203
  Receipt Date: 20171206
  Transmission Date: 20180321
  Serious: Yes (Other)
  Sender: FDA-Public Use
  Company Number: US-009507513-1711USA011609

PATIENT
  Sex: Female

DRUGS (1)
  1. PRINIVIL [Suspect]
     Active Substance: LISINOPRIL
     Indication: HYPERTENSION
     Dosage: 10 MG TWICE A DAY
     Route: 048
     Dates: start: 2003

REACTIONS (4)
  - Fluid retention [Unknown]
  - Blood pressure increased [Unknown]
  - Product use complaint [Unknown]
  - Cerebrovascular arteriovenous malformation [Unknown]

NARRATIVE: CASE EVENT DATE: 2009
